FAERS Safety Report 15837520 (Version 2)
Quarter: 2019Q2

REPORT INFORMATION
  Report Type: Spontaneous
  Country: US (occurrence: US)
  Receive Date: 20190117
  Receipt Date: 20190606
  Transmission Date: 20190711
  Serious: No
  Sender: FDA-Public Use
  Company Number: US-SA-2019SA009731

PATIENT
  Age: 28 Year
  Sex: Female

DRUGS (2)
  1. SPRINTEC [Concomitant]
     Active Substance: ETHINYL ESTRADIOL\NORGESTIMATE
     Indication: CONTRACEPTION
  2. DUPIXENT [Suspect]
     Active Substance: DUPILUMAB
     Indication: DERMATITIS ATOPIC
     Dosage: 300 MG, QOW
     Route: 058
     Dates: start: 20181113

REACTIONS (6)
  - Hot flush [Unknown]
  - Asthenia [Unknown]
  - Erythema [Unknown]
  - Swelling face [Unknown]
  - Unevaluable event [Unknown]
  - Fatigue [Unknown]

NARRATIVE: CASE EVENT DATE: 201905
